FAERS Safety Report 5262458-8 (Version None)
Quarter: 2007Q1

REPORT INFORMATION
  Report Type: 
  Country: None (occurrence: None)
  Receive Date: 20070312
  Receipt Date: 20070227
  Transmission Date: 20070707
  Serious: Yes (Hospitalization)
  Sender: FDA-Public Use
  Company Number: PHEH2007US02488

PATIENT
  Age: 43 Year
  Sex: Female

DRUGS (2)
  1. LOTREL [Suspect]
     Indication: HYPERTENSION
     Dosage: 10/40 MG, QD
     Route: 048
     Dates: start: 20070219, end: 20070221
  2. ATENOLOL [Concomitant]

REACTIONS (4)
  - HEADACHE [None]
  - LIP SWELLING [None]
  - SWELLING FACE [None]
  - VISION BLURRED [None]
